FAERS Safety Report 7805990-2 (Version None)
Quarter: 2011Q4

REPORT INFORMATION
  Report Type: 
  Country: None (occurrence: None)
  Receive Date: 20111011
  Receipt Date: 20111004
  Transmission Date: 20120403
  Serious: Yes (Hospitalization)
  Sender: FDA-Public Use
  Company Number: ES-US-EMD SERONO, INC.-7080701

PATIENT
  Sex: Female
  Weight: 82 kg

DRUGS (3)
  1. CLADRIBINE [Suspect]
     Route: 048
     Dates: start: 20101021, end: 20101023
  2. REBIF [Suspect]
     Indication: MULTIPLE SCLEROSIS
  3. CLADRIBINE [Suspect]
     Indication: MULTIPLE SCLEROSIS
     Route: 048
     Dates: start: 20101019, end: 20101020

REACTIONS (1)
  - EVENTRATION PROCEDURE [None]
